FAERS Safety Report 7085864-8 (Version None)
Quarter: 2010Q4

REPORT INFORMATION
  Report Type: 
  Country: None (occurrence: None)
  Receive Date: 20101105
  Receipt Date: 20100924
  Transmission Date: 20110411
  Serious: Yes (Hospitalization, Other)
  Sender: FDA-Public Use
  Company Number: US-BAXTER-2010BH000873

PATIENT
  Age: 71 Year
  Sex: Male
  Weight: 110 kg

DRUGS (6)
  1. HEPARIN SODIUM INJECTION [Suspect]
     Indication: CORONARY ARTERY BYPASS
     Route: 042
     Dates: start: 20080201, end: 20080101
  2. ASPIRIN [Concomitant]
     Indication: PRODUCT USED FOR UNKNOWN INDICATION
     Route: 065
  3. DIOVAN [Concomitant]
     Indication: PRODUCT USED FOR UNKNOWN INDICATION
     Route: 065
  4. INSULIN DETEMIR [Concomitant]
     Indication: PRODUCT USED FOR UNKNOWN INDICATION
     Route: 065
  5. DAILY MULTIVITAMIN [Concomitant]
     Indication: PRODUCT USED FOR UNKNOWN INDICATION
     Route: 065
  6. NOVOLOG [Concomitant]
     Indication: PRODUCT USED FOR UNKNOWN INDICATION
     Route: 065

REACTIONS (8)
  - ASTHENIA [None]
  - CARDIAC DISORDER [None]
  - COMA [None]
  - DYSPNOEA [None]
  - HEADACHE [None]
  - HEPARIN-INDUCED THROMBOCYTOPENIA [None]
  - ORGAN FAILURE [None]
  - SYNCOPE [None]
